FAERS Safety Report 16474864 (Version 1)
Quarter: 2019Q2

REPORT INFORMATION
  Report Type: Report from Study
  Country: US (occurrence: US)
  Receive Date: 20190625
  Receipt Date: 20190625
  Transmission Date: 20190711
  Serious: Yes (Hospitalization, Other)
  Sender: FDA-Public Use
  Company Number: US-ASTELLAS-2016US044728

PATIENT
  Age: 46 Year
  Sex: Female
  Weight: 50 kg

DRUGS (14)
  1. VANCOMYCIN [Concomitant]
     Active Substance: VANCOMYCIN
     Route: 042
     Dates: start: 20161019, end: 20161020
  2. METRONIDAZOLE. [Concomitant]
     Active Substance: METRONIDAZOLE
     Indication: PROPHYLAXIS
     Route: 048
     Dates: start: 20161004, end: 20161011
  3. HYDROXYUREA. [Suspect]
     Active Substance: HYDROXYUREA
     Indication: ACUTE MYELOID LEUKAEMIA
     Route: 048
     Dates: start: 20161002, end: 20161006
  4. CEFEPIME [Concomitant]
     Active Substance: CEFEPIME HYDROCHLORIDE
     Indication: PROPHYLAXIS
     Route: 042
     Dates: start: 20161007, end: 20161103
  5. METRONIDAZOLE. [Concomitant]
     Active Substance: METRONIDAZOLE
     Route: 048
     Dates: start: 20161103, end: 20161106
  6. METRONIDAZOLE. [Concomitant]
     Active Substance: METRONIDAZOLE
     Route: 042
     Dates: start: 20161020, end: 20161022
  7. VORICONAZOLE. [Concomitant]
     Active Substance: VORICONAZOLE
     Indication: PROPHYLAXIS
     Route: 048
     Dates: start: 20161011, end: 20161013
  8. VALACYCLOVIR [Concomitant]
     Active Substance: VALACYCLOVIR HYDROCHLORIDE
     Indication: MUCOSAL INFLAMMATION
     Route: 048
     Dates: start: 20161011, end: 20161013
  9. ASP2215 [Suspect]
     Active Substance: GILTERITINIB
     Indication: ACUTE MYELOID LEUKAEMIA
     Route: 048
     Dates: start: 20161010, end: 20161018
  10. ASP2215 [Suspect]
     Active Substance: GILTERITINIB
     Route: 048
     Dates: start: 20161201, end: 20170220
  11. CYTARABINE. [Suspect]
     Active Substance: CYTARABINE
     Indication: ACUTE MYELOID LEUKAEMIA
     Route: 042
     Dates: start: 20161007, end: 20161013
  12. IDARUBICIN [Suspect]
     Active Substance: IDARUBICIN
     Indication: ACUTE MYELOID LEUKAEMIA
     Route: 042
     Dates: start: 20161007, end: 20161009
  13. VALACYCLOVIR [Concomitant]
     Active Substance: VALACYCLOVIR HYDROCHLORIDE
     Indication: PROPHYLAXIS
     Route: 048
     Dates: start: 20161004, end: 20161011
  14. VANCOMYCIN [Concomitant]
     Active Substance: VANCOMYCIN
     Indication: FEBRILE NEUTROPENIA
     Route: 042
     Dates: start: 20161007, end: 20161011

REACTIONS (5)
  - Pharyngeal inflammation [Recovering/Resolving]
  - Cerebral ischaemia [Recovered/Resolved]
  - Lung infection [Recovered/Resolved]
  - Acute myeloid leukaemia [Not Recovered/Not Resolved]
  - Laryngeal inflammation [Recovered/Resolved]

NARRATIVE: CASE EVENT DATE: 20161013
